FAERS Safety Report 18798392 (Version 2)
Quarter: 2022Q1

REPORT INFORMATION
  Report Type: Other
  Country: US (occurrence: None)
  Receive Date: 20210128
  Receipt Date: 20220128
  Transmission Date: 20220423
  Serious: No
  Sender: FDA-Public Use
  Company Number: US-ROCHE-2491517

PATIENT
  Age: 44 Year
  Sex: Female
  Weight: 86.260 kg

DRUGS (14)
  1. OCREVUS [Suspect]
     Active Substance: OCRELIZUMAB
     Indication: Progressive multiple sclerosis
     Dosage: NEXT 1/2 DOSE (300 MG) REPORTED WAS GIVEN 27/NOV/2019?INFUSE 300MG DAY 1, THEN 300MG DAY 15. INFUSE
     Route: 042
     Dates: start: 20191102
  2. OCREVUS [Suspect]
     Active Substance: OCRELIZUMAB
     Indication: Primary progressive multiple sclerosis
     Dosage: DATES OF TREATMENT: 12/MAY/2020, 16/NOV/2020
     Route: 042
     Dates: start: 20191111
  3. CLONIDINE [Concomitant]
     Active Substance: CLONIDINE
     Indication: Blood pressure measurement
     Route: 048
  4. SPIRONOLACTONE [Concomitant]
     Active Substance: SPIRONOLACTONE
     Indication: Blood pressure measurement
     Route: 048
  5. LABETALOL [Concomitant]
     Active Substance: LABETALOL\LABETALOL HYDROCHLORIDE
     Indication: Blood pressure measurement
  6. TIZANIDINE [Concomitant]
     Active Substance: TIZANIDINE
     Dates: start: 2019
  7. BACLOFEN [Concomitant]
     Active Substance: BACLOFEN
  8. EMBEDA [Concomitant]
     Active Substance: MORPHINE SULFATE\NALTREXONE HYDROCHLORIDE
     Indication: Pain
     Dosage: EXTENDED RELEASE 20MG/.08MG ;ONGOING: YES
  9. VITAMIN D3 [Concomitant]
     Active Substance: CHOLECALCIFEROL
     Indication: Vitamin D decreased
     Dates: start: 2018
  10. ASPIRIN [Concomitant]
     Active Substance: ASPIRIN
     Indication: Blood pressure measurement
  11. CRANBERRY [Concomitant]
     Active Substance: CRANBERRY
     Indication: Prophylaxis
     Dates: start: 2018
  12. PROMETHAZINE [Concomitant]
     Active Substance: PROMETHAZINE HYDROCHLORIDE
     Indication: Nausea
     Dosage: AS NEEDED ;ONGOING: YES
     Route: 048
  13. OXYCODONE [Concomitant]
     Active Substance: OXYCODONE
     Indication: Pain
     Dosage: CAN TAKE UP TO 4 TIMES A DAY ;ONGOING: YES
  14. PROTONIX [Concomitant]
     Active Substance: PANTOPRAZOLE SODIUM
     Route: 048

REACTIONS (9)
  - Fatigue [Unknown]
  - Vision blurred [Recovered/Resolved]
  - Asthenia [Recovering/Resolving]
  - Sinusitis [Recovered/Resolved]
  - Urinary tract infection [Recovered/Resolved]
  - COVID-19 [Recovered/Resolved]
  - Illness [Recovered/Resolved]
  - Nasopharyngitis [Unknown]
  - Off label use [Unknown]

NARRATIVE: CASE EVENT DATE: 20191102
